FAERS Safety Report 20655203 (Version 1)
Quarter: 2022Q1

REPORT INFORMATION
  Report Type: Spontaneous
  Country: US (occurrence: US)
  Receive Date: 20220330
  Receipt Date: 20220330
  Transmission Date: 20220423
  Serious: No
  Sender: FDA-Public Use
  Company Number: US-KYOWAKIRIN-2022BKK004258

PATIENT

DRUGS (3)
  1. SANCUSO [Suspect]
     Active Substance: GRANISETRON
     Indication: Prophylaxis of nausea and vomiting
     Dosage: 1 PATCH, EVERY 7 DAYS
     Route: 062
  2. SANCUSO [Suspect]
     Active Substance: GRANISETRON
     Dosage: 1 PATCH, EVERY 7 DAYS
     Route: 062
     Dates: start: 202008
  3. SANCUSO [Suspect]
     Active Substance: GRANISETRON
     Dosage: 1 PATCH, EVERY 7 DAYS
     Route: 062
     Dates: start: 202008

REACTIONS (5)
  - Product adhesion issue [Unknown]
  - Incorrect dose administered by product [Unknown]
  - Expired product administered [Unknown]
  - Drug ineffective [Unknown]
  - Wrong technique in product usage process [Unknown]

NARRATIVE: CASE EVENT DATE: 20220201
